FAERS Safety Report 10731249 (Version 1)
Quarter: 2015Q1

REPORT INFORMATION
  Report Type: Spontaneous
  Country: US (occurrence: US)
  Receive Date: 20150122
  Receipt Date: 20150122
  Transmission Date: 20150721
  Serious: Yes (Hospitalization, Other)
  Sender: FDA-Public Use
  Company Number: US-BRISTOL-MYERS SQUIBB COMPANY-BMS-2015-001639

PATIENT
  Age: 47 Year
  Sex: Male
  Weight: 152.83 kg

DRUGS (15)
  1. KEPPRA [Concomitant]
     Active Substance: LEVETIRACETAM
  2. CALCIUM [Concomitant]
     Active Substance: CALCIUM
  3. REYATAZ [Suspect]
     Active Substance: ATAZANAVIR SULFATE
     Indication: ACQUIRED IMMUNODEFICIENCY SYNDROME
     Dosage: 200 MG, UNK
     Route: 048
  4. LIPITOR [Concomitant]
     Active Substance: ATORVASTATIN CALCIUM
  5. ASPIRIN LOW DOSE [Concomitant]
     Active Substance: ASPIRIN
  6. TRILEPTAL [Concomitant]
     Active Substance: OXCARBAZEPINE
  7. METFORMIN [Concomitant]
     Active Substance: METFORMIN HYDROCHLORIDE
  8. LORTAB [Suspect]
     Active Substance: ACETAMINOPHEN\HYDROCODONE BITARTRATE
     Indication: PAIN
  9. EPZICOM [Concomitant]
     Active Substance: ABACAVIR SULFATE\LAMIVUDINE
  10. ZOFRAN                             /00955301/ [Concomitant]
     Active Substance: ONDANSETRON HYDROCHLORIDE
  11. LEVOTHYROXINE [Concomitant]
     Active Substance: LEVOTHYROXINE
  12. SERTRALINE [Concomitant]
     Active Substance: SERTRALINE HYDROCHLORIDE
  13. METOPROLOL [Concomitant]
     Active Substance: METOPROLOL
  14. VITAMIN D                          /00107901/ [Concomitant]
     Active Substance: ERGOCALCIFEROL
  15. MULTIVITAMIN                       /00097801/ [Concomitant]
     Active Substance: VITAMINS

REACTIONS (5)
  - Bacterial diarrhoea [Unknown]
  - Brain neoplasm [Unknown]
  - Weight increased [Unknown]
  - Blood glucose increased [Unknown]
  - Seizure [Unknown]

NARRATIVE: CASE EVENT DATE: 201211
